FAERS Safety Report 21000441 (Version 1)
Quarter: 2022Q2

REPORT INFORMATION
  Report Type: Spontaneous
  Country: JP (occurrence: JP)
  Receive Date: 20220623
  Receipt Date: 20220623
  Transmission Date: 20220721
  Serious: Yes (Other)
  Sender: FDA-Public Use
  Company Number: JP-MSD-M2022-04782

PATIENT
  Age: 8 Decade

DRUGS (1)
  1. KEYTRUDA [Suspect]
     Active Substance: PEMBROLIZUMAB
     Dosage: 200 MILLIGRAM, Q3W
     Route: 041

REACTIONS (6)
  - Thyrotoxic myopathy [Unknown]
  - Blood creatine phosphokinase increased [Unknown]
  - Eyelid ptosis [Unknown]
  - Hepatic function abnormal [Unknown]
  - Muscular weakness [Unknown]
  - Somnolence [Unknown]
